FAERS Safety Report 6174242-1 (Version None)
Quarter: 2009Q2

REPORT INFORMATION
  Report Type: 
  Country: None (occurrence: None)
  Receive Date: 20090430
  Receipt Date: 20080403
  Transmission Date: 20091009
  Serious: No
  Sender: FDA-Public Use
  Company Number: US-ASTRAZENECA-2008UW05356

PATIENT
  Age: 60 Year
  Sex: Female
  Weight: 53.5 kg

DRUGS (4)
  1. NEXIUM [Suspect]
     Indication: GASTROOESOPHAGEAL REFLUX DISEASE
     Route: 048
  2. NEXIUM [Suspect]
     Dosage: TOOK NEXIUM 40 MG BROKEN IN HALF
     Route: 048
  3. ATENOLOL [Concomitant]
  4. ALPRAZOLAM [Concomitant]

REACTIONS (5)
  - DRUG ADMINISTRATION ERROR [None]
  - HEADACHE [None]
  - HOT FLUSH [None]
  - MOOD ALTERED [None]
  - SOMNOLENCE [None]
